FAERS Safety Report 4646655-8 (Version None)
Quarter: 2005Q2

REPORT INFORMATION
  Report Type: 
  Country: None (occurrence: None)
  Receive Date: 20050422
  Receipt Date: 20050422
  Transmission Date: 20051028
  Serious: Yes (Hospitalization)
  Sender: FDA-Public Use
  Company Number: None

PATIENT
  Age: 47 Year
  Sex: Male
  Weight: 95.7 kg

DRUGS (3)
  1. AUGMENTIN '500' [Suspect]
  2. HC 1%/NEOMYCIN 3.5MG/POLYMYXIN [Concomitant]
  3. OXYCODONE 5MG/ACETAMINOPHEN [Concomitant]

REACTIONS (1)
  - PRURITUS [None]
